FAERS Safety Report 7085705-9 (Version None)
Quarter: 2010Q4

REPORT INFORMATION
  Report Type: 
  Country: None (occurrence: None)
  Receive Date: 20101105
  Receipt Date: 20101027
  Transmission Date: 20110411
  Serious: Yes (Other)
  Sender: FDA-Public Use
  Company Number: US-ASTRAZENECA-2010SE36003

PATIENT
  Age: 20480 Day
  Sex: Female

DRUGS (3)
  1. CRESTOR [Suspect]
     Route: 048
  2. HYZAAR [Concomitant]
     Indication: HYPERTENSION
     Route: 048
  3. COREG [Concomitant]
     Indication: HYPERTENSION
     Route: 048

REACTIONS (3)
  - ANGER [None]
  - ANXIETY [None]
  - MOOD SWINGS [None]
